FAERS Safety Report 14659173 (Version 1)
Quarter: 2018Q1

REPORT INFORMATION
  Report Type: Spontaneous
  Country: US (occurrence: US)
  Receive Date: 20180317
  Receipt Date: 20180317
  Transmission Date: 20180509
  Serious: Yes (Hospitalization)
  Sender: FDA-Public Use
  Company Number: None

PATIENT
  Age: 13 Year
  Sex: Female

DRUGS (10)
  1. LEVOFLOXACIN/LINEZOLID [Concomitant]
  2. GUAIFENESIN. [Concomitant]
     Active Substance: GUAIFENESIN
  3. ONDANSETRON [Concomitant]
     Active Substance: ONDANSETRON
  4. PULMOZYME [Concomitant]
     Active Substance: DORNASE ALFA
  5. TOBRAMYCIN 300MG/ 20ML [Suspect]
     Active Substance: TOBRAMYCIN
     Dosage: 1 AMPULE BID QOM INHALATION
     Route: 055
     Dates: start: 20160817
  6. FLOVENT [Concomitant]
     Active Substance: FLUTICASONE PROPIONATE
  7. AZITHROMYCIN ANHYDROUS. [Concomitant]
     Active Substance: AZITHROMYCIN ANHYDROUS
  8. ORKAMBI [Concomitant]
     Active Substance: IVACAFTOR\LUMACAFTOR
  9. HYDROCO/APAP [Concomitant]
     Active Substance: ACETAMINOPHEN\HYDROCODONE
  10. SMZ/TMP [Concomitant]
     Active Substance: SULFAMETHOXAZOLE\TRIMETHOPRIM

REACTIONS (1)
  - Pneumonia [None]

NARRATIVE: CASE EVENT DATE: 20180308
